FAERS Safety Report 6814295-8 (Version None)
Quarter: 2010Q3

REPORT INFORMATION
  Report Type: 
  Country: None (occurrence: None)
  Receive Date: 20100702
  Receipt Date: 20100624
  Transmission Date: 20110219
  Serious: Yes (Other)
  Sender: FDA-Public Use
  Company Number: CA-JNJFOC-20100608196

PATIENT
  Sex: Male

DRUGS (12)
  1. REMICADE [Suspect]
     Indication: PSORIASIS
     Route: 042
  2. REMICADE [Suspect]
     Route: 042
  3. OMEPRAZOLE [Concomitant]
  4. PLAQUENIL [Concomitant]
  5. NERISONE [Concomitant]
  6. METHOTREXATE [Concomitant]
  7. DOVONEX [Concomitant]
  8. CLOBETASOL PROPIONATE [Concomitant]
  9. NASACORT [Concomitant]
  10. VALISONE [Concomitant]
  11. AERIUS [Concomitant]
  12. CORTODERM NOS [Concomitant]

REACTIONS (1)
  - LOSS OF CONSCIOUSNESS [None]
